FAERS Safety Report 6672509-1 (Version None)
Quarter: 2010Q2

REPORT INFORMATION
  Report Type: 
  Country: None (occurrence: None)
  Receive Date: 20100408
  Receipt Date: 20100319
  Transmission Date: 20101027
  Serious: Yes (Other)
  Sender: FDA-Public Use
  Company Number: CA-JNJFOC-20100401123

PATIENT
  Sex: Female
  Weight: 83.5 kg

DRUGS (2)
  1. REMICADE [Suspect]
     Indication: PYODERMA GANGRENOSUM
     Dosage: 35TH INFUSION
     Route: 042
  2. REMICADE [Suspect]
     Dosage: 34 INFUSIONS ON UNPSECIFIED DATES
     Route: 042

REACTIONS (10)
  - CHEST PAIN [None]
  - CREPITATIONS [None]
  - DYSPNOEA [None]
  - HYPERHIDROSIS [None]
  - HYPERTENSION [None]
  - INFUSION RELATED REACTION [None]
  - NAUSEA [None]
  - PALLOR [None]
  - TACHYCARDIA [None]
  - TACHYPNOEA [None]
